FAERS Safety Report 7342676-5 (Version None)
Quarter: 2011Q1

REPORT INFORMATION
  Report Type: 
  Country: None (occurrence: None)
  Receive Date: 20110310
  Receipt Date: 20110307
  Transmission Date: 20110831
  Serious: Yes (Death)
  Sender: FDA-Public Use
  Company Number: JP-PFIZER INC-2011043399

PATIENT
  Age: 33 Year
  Sex: Male
  Weight: 68 kg

DRUGS (5)
  1. MYSLEE [Concomitant]
     Dosage: UNK
  2. ZOLOFT [Suspect]
     Dosage: UNK
     Route: 048
     Dates: start: 20090401
  3. MEILAX [Concomitant]
     Dosage: UNK
  4. PAXIL [Concomitant]
     Dosage: UNK
  5. RESLIN [Concomitant]
     Dosage: UNK

REACTIONS (1)
  - DEATH [None]
